FAERS Safety Report 6856547-1 (Version None)
Quarter: 2010Q2

REPORT INFORMATION
  Report Type: 
  Country: None (occurrence: None)
  Receive Date: 20100630
  Receipt Date: 20100506
  Transmission Date: 20101027
  Serious: No
  Sender: FDA-Public Use
  Company Number: 1000013740

PATIENT
  Age: 45 Year
  Sex: Male

DRUGS (10)
  1. BYSTOLIC [Suspect]
     Indication: HYPERTENSION
     Dosage: SEE IMAGE
     Route: 048
     Dates: start: 20090101, end: 20091210
  2. BYSTOLIC [Suspect]
     Indication: HYPERTENSION
     Dosage: SEE IMAGE
     Route: 048
     Dates: start: 20091211, end: 20100101
  3. BYSTOLIC [Suspect]
     Indication: HYPERTENSION
     Dosage: SEE IMAGE
     Route: 048
     Dates: start: 20100101, end: 20100101
  4. BYSTOLIC [Suspect]
     Indication: HYPERTENSION
     Dosage: SEE IMAGE
     Route: 048
     Dates: start: 20100101, end: 20100101
  5. ASPIRIN [Concomitant]
  6. ALLOPURINOL [Concomitant]
  7. SIMVASTATIN [Concomitant]
  8. TELMISARTAN [Concomitant]
  9. HYDROCHLOROTHIAZIDE [Concomitant]
  10. AMLODIPINE [Concomitant]

REACTIONS (1)
  - LOSS OF CONSCIOUSNESS [None]
